FAERS Safety Report 11718182 (Version 1)
Quarter: 2015Q4

REPORT INFORMATION
  Report Type: Spontaneous
  Country: None (occurrence: None)
  Receive Date: 20151109
  Receipt Date: 20151109
  Transmission Date: 20160304
  Serious: No
  Sender: FDA-Public Use
  Company Number: None

PATIENT
  Age: 28 Year
  Sex: Female
  Weight: 52 kg

DRUGS (3)
  1. CIPRO [Suspect]
     Active Substance: CIPROFLOXACIN HYDROCHLORIDE
     Indication: KIDNEY INFECTION
     Dosage: TAKEN BY MOUTH
  2. MULTIVITAMIN [Concomitant]
     Active Substance: VITAMINS
  3. FLAXSEED [Concomitant]
     Active Substance: FLAX SEED

REACTIONS (19)
  - Pruritus [None]
  - Hypoaesthesia [None]
  - Depression [None]
  - Skin burning sensation [None]
  - Costochondritis [None]
  - Dyspnoea [None]
  - Fatigue [None]
  - Disturbance in attention [None]
  - Formication [None]
  - Asthenia [None]
  - Photosensitivity reaction [None]
  - Impaired work ability [None]
  - Eye irritation [None]
  - Feeling abnormal [None]
  - Photophobia [None]
  - Tendon rupture [None]
  - Ligament sprain [None]
  - Alcohol intolerance [None]
  - Food intolerance [None]

NARRATIVE: CASE EVENT DATE: 20110411
